FAERS Safety Report 5306874-4 (Version None)
Quarter: 2007Q2

REPORT INFORMATION
  Report Type: 
  Country: None (occurrence: None)
  Receive Date: 20070425
  Receipt Date: 20070413
  Transmission Date: 20071010
  Serious: Yes (Death, Life-Threatening, Other)
  Sender: FDA-Public Use
  Company Number: HQWYE699207FEB06

PATIENT
  Sex: Male
  Weight: 56 kg

DRUGS (6)
  1. MYLOTARG [Suspect]
     Indication: ACUTE MYELOID LEUKAEMIA RECURRENT
     Route: 041
     Dates: start: 20051129, end: 20051129
  2. GLEEVEC [Concomitant]
     Indication: ACUTE MYELOID LEUKAEMIA RECURRENT
     Dosage: NOT PROVIDED
     Route: 048
     Dates: start: 20051204, end: 20060201
  3. FLUCONAZOLE [Concomitant]
     Indication: PROPHYLAXIS
     Dosage: 100 MG/DAY
     Route: 048
     Dates: start: 20050208
  4. ALTAT [Concomitant]
     Indication: PROPHYLAXIS
     Dosage: 150 MG/DAY
     Route: 048
     Dates: start: 20041208
  5. BAKTAR [Concomitant]
     Indication: PROPHYLAXIS
     Dosage: 1 G/DAY
     Route: 048
     Dates: start: 20050720
  6. CIPROFLOXACIN [Concomitant]
     Indication: PROPHYLAXIS
     Dosage: 600 MG/DAY
     Route: 048
     Dates: start: 20050830

REACTIONS (6)
  - ANAEMIA [None]
  - FEBRILE NEUTROPENIA [None]
  - NEUTROPHIL COUNT DECREASED [None]
  - PLATELET COUNT DECREASED [None]
  - PNEUMONIA [None]
  - WHITE BLOOD CELL COUNT DECREASED [None]
